FAERS Safety Report 6742021-X (Version None)
Quarter: 2010Q2

REPORT INFORMATION
  Report Type: 
  Country: None (occurrence: None)
  Receive Date: 20100526
  Receipt Date: 20100517
  Transmission Date: 20101027
  Serious: Yes (Other)
  Sender: FDA-Public Use
  Company Number: US-JNJFOC-20100507350

PATIENT
  Sex: Female
  Weight: 65.77 kg

DRUGS (4)
  1. NEUTRAPHOS [Suspect]
     Indication: MEDICAL DIET
     Route: 048
  2. SYNTHROID [Concomitant]
     Indication: AUTOIMMUNE THYROIDITIS
     Route: 048
  3. UNKNOWN STATIN [Concomitant]
     Indication: BLOOD CHOLESTEROL
     Route: 048
  4. BLOOD PRESSURE MEDICATION NOS [Concomitant]
     Indication: BLOOD PRESSURE
     Route: 065

REACTIONS (3)
  - BLOOD PHOSPHORUS DECREASED [None]
  - MUSCLE SPASMS [None]
  - PAIN [None]
